FAERS Safety Report 18847389 (Version 1)
Quarter: 2021Q1

REPORT INFORMATION
  Report Type: Report from Study
  Country: US (occurrence: US)
  Receive Date: 20210203
  Receipt Date: 20210203
  Transmission Date: 20210419
  Serious: Yes (Death, Other)
  Sender: FDA-Public Use
  Company Number: US-SUN PHARMACEUTICAL INDUSTRIES LTD-2021R1-277681

PATIENT
  Sex: Female

DRUGS (2)
  1. NIFEDIPINE. [Suspect]
     Active Substance: NIFEDIPINE
     Indication: HYPERTENSION
     Dosage: UNK
     Route: 065
  2. TERBUTALINE [Suspect]
     Active Substance: TERBUTALINE
     Indication: TOCOLYSIS
     Dosage: UNK
     Route: 065

REACTIONS (4)
  - Foetal death [Fatal]
  - Exposure during pregnancy [Unknown]
  - Placenta praevia haemorrhage [Unknown]
  - Haemorrhage [Unknown]
